FAERS Safety Report 5388947-3 (Version None)
Quarter: 2007Q3

REPORT INFORMATION
  Report Type: 
  Country: None (occurrence: None)
  Receive Date: 20070717
  Receipt Date: 20070713
  Transmission Date: 20080115
  Serious: Yes (Death)
  Sender: FDA-Public Use
  Company Number: PHEH2007US09917

PATIENT
  Age: 81 Year
  Sex: Male

DRUGS (1)
  1. EXJADE [Suspect]
     Indication: MYELODYSPLASTIC SYNDROME
     Dosage: 1750 MG, QD
     Route: 048
     Dates: start: 20070403

REACTIONS (1)
  - CARDIAC FAILURE CONGESTIVE [None]
